FAERS Safety Report 7759478-8 (Version None)
Quarter: 2011Q3

REPORT INFORMATION
  Report Type: 
  Country: None (occurrence: None)
  Receive Date: 20110919
  Receipt Date: 20110919
  Transmission Date: 20111222
  Serious: Yes (Hospitalization)
  Sender: FDA-Public Use
  Company Number: None

PATIENT
  Sex: Female

DRUGS (5)
  1. REVLIMID [Suspect]
     Indication: MULTIPLE MYELOMA
  2. REVLIMID [Suspect]
     Indication: OSTEOPOROSIS
  3. SYNTHROID [Suspect]
     Indication: HYPOTHYROIDISM
  4. EFFEXOR [Suspect]
     Indication: DEPRESSION
  5. ZOMETA [Suspect]
     Indication: BONE DISORDER

REACTIONS (1)
  - UPPER LIMB FRACTURE [None]
